FAERS Safety Report 23571256 (Version 1)
Quarter: 2024Q1

REPORT INFORMATION
  Report Type: Spontaneous
  Country: US (occurrence: None)
  Receive Date: 20240227
  Receipt Date: 20240227
  Transmission Date: 20240410
  Serious: Yes (Death, Hospitalization)
  Sender: FDA-Public Use
  Company Number: None

PATIENT
  Age: 63 Year
  Sex: Male
  Weight: 83.9 kg

DRUGS (1)
  1. RITUXIMAB [Suspect]
     Active Substance: RITUXIMAB
     Dates: end: 20231214

REACTIONS (4)
  - Respiratory failure [None]
  - Pneumonitis [None]
  - Therapy cessation [None]
  - Pulse absent [None]

NARRATIVE: CASE EVENT DATE: 20240108
